FAERS Safety Report 5628334-3 (Version None)
Quarter: 2008Q1

REPORT INFORMATION
  Report Type: 
  Country: None (occurrence: None)
  Receive Date: 20080131
  Receipt Date: 20071119
  Transmission Date: 20080703
  Serious: No
  Sender: FDA-Public Use
  Company Number: 163-21880-07111149

PATIENT
  Age: 66 Year
  Sex: Male

DRUGS (8)
  1. REVLIMID [Suspect]
     Indication: MULTIPLE MYELOMA
     Dosage: 25 MG, DAILY FOR 21 DAYS, THEN OFF 7 DAYS, ORAL
     Route: 048
     Dates: start: 20070921
  2. EFFEXOR [Concomitant]
  3. LORAZEPAM (LORAZEPAM) (TABLETS) [Concomitant]
  4. DEXAMETHASONE [Concomitant]
  5. ALTACE (RAMIPRIL) (CAPSULES) [Concomitant]
  6. LIPITOR [Concomitant]
  7. CLARINEX [Concomitant]
  8. IRON (IRON) (TABLETS) [Concomitant]

REACTIONS (1)
  - ANXIETY [None]
